FAERS Safety Report 14142653 (Version 1)
Quarter: 2017Q4

REPORT INFORMATION
  Report Type: Spontaneous
  Country: US (occurrence: US)
  Receive Date: 20171030
  Receipt Date: 20171030
  Transmission Date: 20180321
  Serious: No
  Sender: FDA-Public Use
  Company Number: US-BAYER-2017-203210

PATIENT
  Sex: Female
  Weight: 56 kg

DRUGS (3)
  1. MIRALAX [Suspect]
     Active Substance: POLYETHYLENE GLYCOL 3350
     Indication: GASTROINTESTINAL DISORDER
     Dosage: UNK
  2. BAYER ASPIRIN [Suspect]
     Active Substance: ASPIRIN
     Indication: HEART RATE ABNORMAL
     Dosage: UNK
     Route: 065
  3. MIRALAX [Suspect]
     Active Substance: POLYETHYLENE GLYCOL 3350
     Indication: GASTROINTESTINAL DISORDER
     Dosage: UNK UNK, BID
     Route: 048

REACTIONS (3)
  - Off label use [Unknown]
  - Incorrect drug administration duration [Unknown]
  - Product use in unapproved indication [Unknown]
